FAERS Safety Report 10067908 (Version 2)
Quarter: 2014Q2

REPORT INFORMATION
  Report Type: Spontaneous
  Country: US (occurrence: US)
  Receive Date: 20140409
  Receipt Date: 20140530
  Transmission Date: 20141212
  Serious: Yes (Death, Life-Threatening, Hospitalization, Other)
  Sender: FDA-Public Use
  Company Number: US-MERCK-1404USA004170

PATIENT
  Sex: Female
  Weight: 113.38 kg

DRUGS (3)
  1. JANUVIA [Suspect]
     Indication: TYPE 2 DIABETES MELLITUS
     Dosage: 100 MG, QD
     Route: 048
     Dates: start: 20090905, end: 20100825
  2. JANUVIA [Suspect]
     Dosage: 100 MG, QD
     Route: 048
     Dates: start: 20101122, end: 20111212
  3. METFORMIN [Concomitant]
     Indication: TYPE 2 DIABETES MELLITUS
     Dosage: 500-1000 MG BID

REACTIONS (26)
  - Pancreatic carcinoma metastatic [Fatal]
  - Metastases to liver [Fatal]
  - Pancreatitis relapsing [Unknown]
  - Pancreatitis chronic [Not Recovered/Not Resolved]
  - Diabetic ketoacidosis [Unknown]
  - Hyperglycaemia [Unknown]
  - Diabetes mellitus inadequate control [Unknown]
  - Cholecystectomy [Unknown]
  - Bile duct stenosis [Unknown]
  - Bile duct stent insertion [Unknown]
  - Pancreatitis acute [Unknown]
  - Helicobacter gastritis [Unknown]
  - Hypothyroidism [Unknown]
  - Blood cholesterol increased [Unknown]
  - Urinary tract infection [Unknown]
  - Anaemia [Unknown]
  - Carpal tunnel decompression [Unknown]
  - Endometriosis [Unknown]
  - Anxiety [Unknown]
  - Gastrooesophageal reflux disease [Unknown]
  - Treatment noncompliance [Unknown]
  - Hypoglycaemia [Unknown]
  - Constipation [Not Recovered/Not Resolved]
  - Headache [Unknown]
  - Back pain [Not Recovered/Not Resolved]
  - Constipation [Recovering/Resolving]
